FAERS Safety Report 5947867-3 (Version None)
Quarter: 2008Q4

REPORT INFORMATION
  Report Type: 
  Country: None (occurrence: None)
  Receive Date: 20081107
  Receipt Date: 20081031
  Transmission Date: 20090506
  Serious: Yes (Other)
  Sender: FDA-Public Use
  Company Number: 2008JP005181

PATIENT
  Age: 50 Year
  Sex: Female

DRUGS (6)
  1. PROGRAF [Suspect]
     Indication: LIVER TRANSPLANT
  2. CYCLOPHOSPHAMIDE [Concomitant]
  3. MYCOPHENOLATE MOFETIL [Concomitant]
  4. STEROID [Concomitant]
  5. ANTITHYMOCYTE IMMUNOGLOBULIN (RABBIT) (ANTITHYMOCYTE IMMUNOGLOBULIN (R [Concomitant]
  6. PROSTAGLANDIN E1 (ALPROSTADIL) INJECTION [Concomitant]

REACTIONS (5)
  - HAEMATOMA INFECTION [None]
  - INTRA-ABDOMINAL HAEMATOMA [None]
  - SERRATIA INFECTION [None]
  - THROMBOCYTOPENIA [None]
  - THROMBOTIC MICROANGIOPATHY [None]
